FAERS Safety Report 7033261-3 (Version None)
Quarter: 2010Q4

REPORT INFORMATION
  Report Type: 
  Country: None (occurrence: None)
  Receive Date: 20101007
  Receipt Date: 20101001
  Transmission Date: 20110411
  Serious: Yes (Death, Hospitalization)
  Sender: FDA-Public Use
  Company Number: A0836288A

PATIENT
  Age: 73 Year
  Sex: Female
  Weight: 80 kg

DRUGS (1)
  1. AVANDIA [Suspect]
     Route: 048
     Dates: start: 20051201

REACTIONS (8)
  - CARDIAC FAILURE CONGESTIVE [None]
  - CAROTID ARTERY OCCLUSION [None]
  - CAROTID ARTERY STENOSIS [None]
  - CORONARY ARTERY DISEASE [None]
  - DEATH [None]
  - MITRAL VALVE INCOMPETENCE [None]
  - MYOCARDIAL ISCHAEMIA [None]
  - RIGHT VENTRICULAR HYPERTROPHY [None]
